FAERS Safety Report 6328868-2 (Version None)
Quarter: 2009Q3

REPORT INFORMATION
  Report Type: 
  Country: None (occurrence: None)
  Receive Date: 20090826
  Receipt Date: 20090819
  Transmission Date: 20100115
  Serious: Yes (Death, Hospitalization, Other)
  Sender: FDA-Public Use
  Company Number: JP-ROXANE LABORATORIES, INC.-2009-RO-00847RO

PATIENT
  Age: 66 Year
  Sex: Female

DRUGS (2)
  1. CYCLOPHOSPHAMIDE [Suspect]
     Indication: BREAST CANCER
     Route: 042
  2. ADRIAMYCIN PFS [Suspect]
     Indication: BREAST CANCER
     Route: 042

REACTIONS (5)
  - BREAST CANCER [None]
  - JOINT CONTRACTURE [None]
  - OEDEMA PERIPHERAL [None]
  - PHLEBOSCLEROSIS [None]
  - VENOUS THROMBOSIS [None]
